FAERS Safety Report 14827192 (Version 1)
Quarter: 2018Q2

REPORT INFORMATION
  Report Type: Spontaneous
  Country: US (occurrence: US)
  Receive Date: 20180430
  Receipt Date: 20180430
  Transmission Date: 20180711
  Serious: No
  Sender: FDA-Public Use
  Company Number: US-ABBVIE-18S-163-2218471-00

PATIENT
  Sex: Female

DRUGS (1)
  1. CREON [Suspect]
     Active Substance: PANCRELIPASE AMYLASE\PANCRELIPASE LIPASE\PANCRELIPASE PROTEASE
     Indication: PRODUCT USED FOR UNKNOWN INDICATION
     Dosage: 2 PILLS AT EACH MEAL, 1 PILL WITH SNACKS
     Route: 048
     Dates: start: 2016

REACTIONS (2)
  - Diabetes mellitus [Unknown]
  - Blood insulin increased [Unknown]

NARRATIVE: CASE EVENT DATE: 2016
